FAERS Safety Report 6491991-6 (Version None)
Quarter: 2009Q4

REPORT INFORMATION
  Report Type: 
  Country: None (occurrence: None)
  Receive Date: 20091208
  Receipt Date: 20091101
  Transmission Date: 20100525
  Serious: Yes (Hospitalization)
  Sender: FDA-Public Use
  Company Number: 2009-4718

PATIENT
  Age: 64 Year
  Sex: Female

DRUGS (4)
  1. DYSPORT [Suspect]
     Indication: SPASMODIC DYSPHONIA
     Dosage: SINGLE CYCLE PARENTERAL
     Route: 051
  2. ZOLOFT [Concomitant]
  3. ANAFRANIL [Concomitant]
  4. THERALITE (ALL OTHER THERAPEUTIC PRODUCTS) [Concomitant]

REACTIONS (2)
  - DYSPNOEA [None]
  - MOBILITY DECREASED [None]
